APPROVED DRUG PRODUCT: OXCARBAZEPINE
Active Ingredient: OXCARBAZEPINE
Strength: 300MG
Dosage Form/Route: TABLET;ORAL
Application: A090239 | Product #002
Applicant: JUBILANT CADISTA PHARMACEUTICALS INC
Approved: Jan 25, 2010 | RLD: No | RS: No | Type: DISCN